FAERS Safety Report 4928913-2 (Version None)
Quarter: 2006Q1

REPORT INFORMATION
  Report Type: 
  Country: None (occurrence: None)
  Receive Date: 20060228
  Receipt Date: 20060228
  Transmission Date: 20060701
  Serious: Yes (Hospitalization)
  Sender: FDA-Public Use
  Company Number: None

PATIENT
  Sex: Male
  Weight: 100.3 kg

DRUGS (6)
  1. GLIADEL [Suspect]
     Indication: GLIOBLASTOMA MULTIFORME
     Dosage: 7.7 MG PER WAFER-MAX OF 8
     Dates: start: 20060213
  2. 06-BENZYLGUANINE (06BG) [Suspect]
     Indication: GLIOBLASTOMA MULTIFORME
     Dosage: 7.7 MG PER WAFER-MAX OF 8 30 MG/M2 INFUSION X 5 DAYS
     Dates: start: 20060213, end: 20060217
  3. DECADRON SRC [Concomitant]
  4. ZANTAC [Concomitant]
  5. DILANTIN [Concomitant]
  6. OXYCODONE [Concomitant]

REACTIONS (5)
  - INCISION SITE COMPLICATION [None]
  - INFECTION [None]
  - MENINGITIS [None]
  - SEPSIS [None]
  - WOUND SECRETION [None]
